FAERS Safety Report 23813715 (Version 1)
Quarter: 2024Q2

REPORT INFORMATION
  Report Type: Spontaneous
  Country: CA (occurrence: CA)
  Receive Date: 20240503
  Receipt Date: 20240503
  Transmission Date: 20240716
  Serious: Yes (Death, Hospitalization)
  Sender: FDA-Public Use
  Company Number: None

PATIENT
  Age: 78 Year
  Sex: Female

DRUGS (11)
  1. AZACITIDINE [Suspect]
     Active Substance: AZACITIDINE
     Indication: Acute myeloid leukaemia
     Dosage: 75.0 MG/M2
  2. AZACITIDINE [Suspect]
     Active Substance: AZACITIDINE
     Dosage: 75.0 MG/M2
  3. AZACITIDINE [Suspect]
     Active Substance: AZACITIDINE
     Dosage: 75.0 MG/M2
  4. AZACITIDINE [Suspect]
     Active Substance: AZACITIDINE
     Dosage: 75.0 MG/M2
  5. AZACITIDINE [Suspect]
     Active Substance: AZACITIDINE
     Dosage: 75.0 MG/M2
  6. VENETOCLAX [Suspect]
     Active Substance: VENETOCLAX
     Indication: Acute myeloid leukaemia
     Route: 048
  7. VENETOCLAX [Suspect]
     Active Substance: VENETOCLAX
     Route: 048
  8. VENETOCLAX [Suspect]
     Active Substance: VENETOCLAX
     Route: 048
  9. VENETOCLAX [Suspect]
     Active Substance: VENETOCLAX
     Route: 048
  10. VENETOCLAX [Suspect]
     Active Substance: VENETOCLAX
     Route: 048
  11. COVID-19 VACCINE [Concomitant]
     Indication: COVID-19 prophylaxis

REACTIONS (1)
  - Confusional state [Fatal]
